FAERS Safety Report 8365530-9 (Version None)
Quarter: 2012Q2

REPORT INFORMATION
  Report Type: 
  Country: None (occurrence: None)
  Receive Date: 20120516
  Receipt Date: 20120504
  Transmission Date: 20120825
  Serious: Yes (Death)
  Sender: FDA-Public Use
  Company Number: US-ELI_LILLY_AND_COMPANY-US201205001999

PATIENT
  Sex: Female

DRUGS (14)
  1. MIRALAX [Concomitant]
  2. CYMBALTA [Suspect]
     Indication: DEPRESSION
     Dosage: 30 MG, QD
  3. CELEBREX [Concomitant]
  4. CYMBALTA [Suspect]
     Dosage: 60 MG, EACH MORNING
  5. CYMBALTA [Suspect]
     Dosage: 60 MG, QD
  6. BENZTROPINE MESYLATE [Concomitant]
  7. ZANAFLEX [Concomitant]
  8. CYMBALTA [Suspect]
     Dosage: 30 MG, EACH EVENING
  9. CARAFATE [Concomitant]
  10. LIDODERM [Concomitant]
  11. BUSPIRONE HCL [Concomitant]
  12. OMEPRAZOLE [Concomitant]
  13. TRAZODONE HCL [Concomitant]
  14. IBUPROFEN [Concomitant]
     Dosage: 400 MG, UNKNOWN

REACTIONS (2)
  - ACCIDENTAL DEATH [None]
  - FEELING ABNORMAL [None]
